FAERS Safety Report 11386937 (Version 1)
Quarter: 2015Q3

REPORT INFORMATION
  Report Type: Spontaneous
  Country: GB (occurrence: GB)
  Receive Date: 20150817
  Receipt Date: 20150817
  Transmission Date: 20151125
  Serious: Yes (Hospitalization)
  Sender: FDA-Public Use
  Company Number: GB-TEVA-585190ACC

PATIENT
  Age: 85 Year
  Sex: Female
  Weight: 74.65 kg

DRUGS (10)
  1. CANDESARTAN [Suspect]
     Active Substance: CANDESARTAN
     Route: 048
  2. SODIUM BICARBONATE. [Suspect]
     Active Substance: SODIUM BICARBONATE
  3. LANSOPRAZOLE. [Suspect]
     Active Substance: LANSOPRAZOLE
  4. SERTRALINE [Suspect]
     Active Substance: SERTRALINE HYDROCHLORIDE
     Route: 048
  5. PARACETAMOL [Suspect]
     Active Substance: ACETAMINOPHEN
     Route: 048
  6. SENNA [Concomitant]
     Active Substance: SENNA LEAF\SENNOSIDES\SENNOSIDES A AND B
  7. CLOPIDOGREL [Suspect]
     Active Substance: CLOPIDOGREL BISULFATE
  8. LEVOTHYROXINE. [Suspect]
     Active Substance: LEVOTHYROXINE
  9. SIMVASTATIN. [Suspect]
     Active Substance: SIMVASTATIN
     Route: 048
  10. ZOPICLONE [Suspect]
     Active Substance: ZOPICLONE

REACTIONS (5)
  - Fall [Unknown]
  - Circulatory collapse [Recovering/Resolving]
  - Head injury [Unknown]
  - Overdose [Recovering/Resolving]
  - Blood creatine phosphokinase increased [Recovering/Resolving]

NARRATIVE: CASE EVENT DATE: 201507
